FAERS Safety Report 15780729 (Version 1)
Quarter: 2019Q1

REPORT INFORMATION
  Report Type: Spontaneous
  Country: CN (occurrence: CN)
  Receive Date: 20190102
  Receipt Date: 20190102
  Transmission Date: 20190417
  Serious: Yes (Other)
  Sender: FDA-Public Use
  Company Number: CN-ROCHE-2235844

PATIENT
  Sex: Male

DRUGS (16)
  1. XELODA [Suspect]
     Active Substance: CAPECITABINE
     Indication: COLON CANCER STAGE II
     Dosage: 8 CONSECUTIVE CYCLES
     Route: 048
     Dates: start: 201406
  2. XELODA [Suspect]
     Active Substance: CAPECITABINE
     Indication: GASTROINTESTINAL CARCINOMA
     Route: 048
     Dates: start: 20180506
  3. OXALIPLATIN. [Concomitant]
     Active Substance: OXALIPLATIN
     Route: 042
     Dates: start: 20180714
  4. OXALIPLATIN. [Concomitant]
     Active Substance: OXALIPLATIN
     Route: 042
     Dates: start: 20180601
  5. OXALIPLATIN. [Concomitant]
     Active Substance: OXALIPLATIN
     Route: 042
     Dates: start: 20180827
  6. XELODA [Suspect]
     Active Substance: CAPECITABINE
     Route: 048
     Dates: start: 20180623
  7. XELODA [Suspect]
     Active Substance: CAPECITABINE
     Route: 048
     Dates: start: 20180714
  8. XELODA [Suspect]
     Active Substance: CAPECITABINE
     Route: 065
     Dates: start: 20180827, end: 201810
  9. OXALIPLATIN. [Concomitant]
     Active Substance: OXALIPLATIN
     Route: 042
     Dates: start: 20180623
  10. OXALIPLATIN. [Concomitant]
     Active Substance: OXALIPLATIN
     Route: 042
     Dates: start: 20180804
  11. XELODA [Suspect]
     Active Substance: CAPECITABINE
     Route: 048
     Dates: start: 20180601
  12. XELODA [Suspect]
     Active Substance: CAPECITABINE
     Route: 065
     Dates: start: 20181206
  13. XELODA [Suspect]
     Active Substance: CAPECITABINE
     Route: 048
     Dates: start: 20180804
  14. OXALIPLATIN. [Concomitant]
     Active Substance: OXALIPLATIN
     Indication: COLON CANCER STAGE II
     Route: 042
     Dates: start: 2014
  15. OXALIPLATIN. [Concomitant]
     Active Substance: OXALIPLATIN
     Route: 042
     Dates: start: 20180506
  16. OXALIPLATIN. [Concomitant]
     Active Substance: OXALIPLATIN
     Route: 065
     Dates: start: 20181206

REACTIONS (4)
  - Aortic arteriosclerosis [Unknown]
  - Aortic thrombosis [Unknown]
  - Cholelithiasis [Unknown]
  - Hypoaesthesia [Unknown]
